FAERS Safety Report 18440335 (Version 1)
Quarter: 2020Q4

REPORT INFORMATION
  Report Type: Spontaneous
  Country: JP (occurrence: JP)
  Receive Date: 20201029
  Receipt Date: 20201029
  Transmission Date: 20210114
  Serious: Yes (Other)
  Sender: FDA-Public Use
  Company Number: JP-ROCHE-2703281

PATIENT
  Age: 75 Year
  Sex: Female

DRUGS (39)
  1. RANIBIZUMAB. [Suspect]
     Active Substance: RANIBIZUMAB
     Dosage: RIGHT EYE
     Route: 047
  2. AFLIBERCEPT [Concomitant]
     Active Substance: AFLIBERCEPT
     Dosage: LEFT EYE
     Route: 047
  3. AFLIBERCEPT [Concomitant]
     Active Substance: AFLIBERCEPT
     Dosage: RIGHT EYE
     Route: 047
  4. AFLIBERCEPT [Concomitant]
     Active Substance: AFLIBERCEPT
     Dosage: LEFT EYE
     Route: 047
  5. AFLIBERCEPT [Concomitant]
     Active Substance: AFLIBERCEPT
     Dosage: RIGHT EYE
     Route: 047
  6. RANIBIZUMAB. [Suspect]
     Active Substance: RANIBIZUMAB
     Dosage: RIGHT EYE
     Route: 047
  7. RANIBIZUMAB. [Suspect]
     Active Substance: RANIBIZUMAB
     Dosage: LEFT EYE
     Route: 047
  8. AFLIBERCEPT [Concomitant]
     Active Substance: AFLIBERCEPT
     Indication: AGE-RELATED MACULAR DEGENERATION
     Dosage: LEFT EYE
     Route: 047
  9. AFLIBERCEPT [Concomitant]
     Active Substance: AFLIBERCEPT
     Dosage: RIGHT EYE
     Route: 047
  10. AFLIBERCEPT [Concomitant]
     Active Substance: AFLIBERCEPT
     Dosage: RIGHT EYE
     Route: 047
  11. RANIBIZUMAB. [Suspect]
     Active Substance: RANIBIZUMAB
     Indication: AGE-RELATED MACULAR DEGENERATION
     Dosage: LEFT EYE
     Route: 047
  12. RANIBIZUMAB. [Suspect]
     Active Substance: RANIBIZUMAB
     Dosage: LEFT EYE
     Route: 047
  13. AFLIBERCEPT [Concomitant]
     Active Substance: AFLIBERCEPT
     Dosage: LEFT EYE
     Route: 047
  14. AFLIBERCEPT [Concomitant]
     Active Substance: AFLIBERCEPT
     Dosage: LEFT EYE
     Route: 047
  15. AFLIBERCEPT [Concomitant]
     Active Substance: AFLIBERCEPT
     Dosage: LEFT EYE
     Route: 047
  16. AFLIBERCEPT [Concomitant]
     Active Substance: AFLIBERCEPT
     Dosage: LEFT EYE
     Route: 047
  17. RANIBIZUMAB. [Suspect]
     Active Substance: RANIBIZUMAB
     Dosage: LEFT EYE
     Route: 047
  18. RANIBIZUMAB. [Suspect]
     Active Substance: RANIBIZUMAB
     Dosage: LEFT EYE
     Route: 047
  19. RANIBIZUMAB. [Suspect]
     Active Substance: RANIBIZUMAB
     Dosage: RIGHT EYE
     Route: 047
  20. RANIBIZUMAB. [Suspect]
     Active Substance: RANIBIZUMAB
     Dosage: RIGHT EYE
     Route: 047
  21. AFLIBERCEPT [Concomitant]
     Active Substance: AFLIBERCEPT
     Dosage: LEFT EYE
     Route: 047
  22. AFLIBERCEPT [Concomitant]
     Active Substance: AFLIBERCEPT
     Dosage: LEFT EYE
     Route: 047
  23. AFLIBERCEPT [Concomitant]
     Active Substance: AFLIBERCEPT
     Dosage: RIGHT EYE
     Route: 047
  24. AFLIBERCEPT [Concomitant]
     Active Substance: AFLIBERCEPT
     Dosage: RIGHT  EYE
     Route: 047
  25. AFLIBERCEPT [Concomitant]
     Active Substance: AFLIBERCEPT
     Dosage: LEFT EYE
     Route: 047
  26. RANIBIZUMAB. [Suspect]
     Active Substance: RANIBIZUMAB
     Dosage: LEFT EYE
     Route: 047
  27. AFLIBERCEPT [Concomitant]
     Active Substance: AFLIBERCEPT
     Dosage: LEFT EYE
     Route: 047
  28. AFLIBERCEPT [Concomitant]
     Active Substance: AFLIBERCEPT
     Dosage: LEFT EYE
     Route: 047
  29. RANIBIZUMAB. [Suspect]
     Active Substance: RANIBIZUMAB
     Dosage: LEFT EYE
     Route: 047
  30. AFLIBERCEPT [Concomitant]
     Active Substance: AFLIBERCEPT
     Dosage: LEFT EYE
     Route: 047
  31. AFLIBERCEPT [Concomitant]
     Active Substance: AFLIBERCEPT
     Dosage: LEFT EYE
     Route: 047
  32. RANIBIZUMAB. [Suspect]
     Active Substance: RANIBIZUMAB
     Dosage: RIGHT EYE
     Route: 047
  33. RANIBIZUMAB. [Suspect]
     Active Substance: RANIBIZUMAB
     Dosage: LEFT EYE
     Route: 047
  34. RANIBIZUMAB. [Suspect]
     Active Substance: RANIBIZUMAB
     Dosage: LEFT EYE
     Route: 047
  35. RANIBIZUMAB. [Suspect]
     Active Substance: RANIBIZUMAB
     Dosage: RIGHT EYE
     Route: 047
  36. RANIBIZUMAB. [Suspect]
     Active Substance: RANIBIZUMAB
     Dosage: RIGHT EYE
     Route: 047
  37. RANIBIZUMAB. [Suspect]
     Active Substance: RANIBIZUMAB
     Dosage: LEFT EYE
     Route: 047
  38. RANIBIZUMAB. [Suspect]
     Active Substance: RANIBIZUMAB
     Dosage: RIGHT EYE
     Route: 047
  39. AFLIBERCEPT [Concomitant]
     Active Substance: AFLIBERCEPT
     Dosage: LEFT EYE
     Route: 047

REACTIONS (2)
  - Visual acuity reduced [Unknown]
  - Subretinal fibrosis [Unknown]
